FAERS Safety Report 17404468 (Version 3)
Quarter: 2020Q1

REPORT INFORMATION
  Report Type: Spontaneous
  Country: US (occurrence: US)
  Receive Date: 20200211
  Receipt Date: 20200309
  Transmission Date: 20200409
  Serious: Yes (Other)
  Sender: FDA-Public Use
  Company Number: US-ALLERGAN-2002055US

PATIENT
  Sex: Female

DRUGS (4)
  1. REFRESH OMEGA 3 [Concomitant]
     Indication: DRY EYE
     Dosage: 1 DROP IN BOTH EYES, 1-2 TIMES A DAY
  2. COMBIGAN [Suspect]
     Active Substance: BRIMONIDINE TARTRATE\TIMOLOL MALEATE
     Indication: GLAUCOMA
     Dosage: 1 GTT, BID
  3. LUMIGAN [Suspect]
     Active Substance: BIMATOPROST
     Indication: GLAUCOMA
     Dosage: 2 GTT, QD
  4. REFRESH PLUS [Concomitant]
     Active Substance: CARBOXYMETHYLCELLULOSE SODIUM
     Indication: DRY EYE
     Route: 047

REACTIONS (2)
  - Intraocular lens implant [Unknown]
  - Dry eye [Unknown]

NARRATIVE: CASE EVENT DATE: 201810
